FAERS Safety Report 25677590 (Version 1)
Quarter: 2025Q3

REPORT INFORMATION
  Report Type: Spontaneous
  Country: EU (occurrence: EU)
  Receive Date: 20250813
  Receipt Date: 20250813
  Transmission Date: 20251021
  Serious: Yes (Other)
  Sender: MYLAN
  Company Number: EU-ASPEN-GLO2025IT006387

PATIENT
  Sex: Female

DRUGS (8)
  1. AMIODARONE [Suspect]
     Active Substance: AMIODARONE
     Indication: Supraventricular tachycardia
  2. AMIODARONE [Suspect]
     Active Substance: AMIODARONE
     Route: 065
  3. AMIODARONE [Suspect]
     Active Substance: AMIODARONE
     Route: 065
  4. AMIODARONE [Suspect]
     Active Substance: AMIODARONE
  5. DIGOXIN [Suspect]
     Active Substance: DIGOXIN
     Indication: Supraventricular tachycardia
     Route: 065
  6. DIGOXIN [Suspect]
     Active Substance: DIGOXIN
     Route: 065
  7. DIGOXIN [Suspect]
     Active Substance: DIGOXIN
     Route: 065
  8. DIGOXIN [Suspect]
     Active Substance: DIGOXIN
     Route: 065

REACTIONS (1)
  - Drug ineffective [Unknown]
